FAERS Safety Report 5266134-7 (Version None)
Quarter: 2007Q1

REPORT INFORMATION
  Report Type: 
  Country: None (occurrence: None)
  Receive Date: 20070315
  Receipt Date: 20070306
  Transmission Date: 20070707
  Serious: Yes (Life-Threatening, Hospitalization)
  Sender: FDA-Public Use
  Company Number: DEWYE970220SEP06

PATIENT
  Sex: Female
  Weight: 55 kg

DRUGS (3)
  1. ENBREL [Suspect]
     Indication: RHEUMATOID ARTHRITIS
     Route: 058
     Dates: start: 20040801, end: 20060901
  2. DECORTIN-H [Concomitant]
     Indication: RHEUMATOID ARTHRITIS
     Dosage: UNKNOWN AMOUNT DAILY
     Route: 048
     Dates: start: 20000101, end: 20060101
  3. METHOTREXATE [Concomitant]
     Indication: RHEUMATOID ARTHRITIS
     Route: 051
     Dates: start: 20000101, end: 20060901

REACTIONS (5)
  - BREAST CANCER [None]
  - METASTASIS [None]
  - RECTAL CANCER [None]
  - TONSILLAR HYPERTROPHY [None]
  - VAGINAL CANCER [None]
